FAERS Safety Report 9961629 (Version 2)
Quarter: 2014Q1

REPORT INFORMATION
  Report Type: Report from Study
  Country: US (occurrence: US)
  Receive Date: 20140305
  Receipt Date: 20140305
  Transmission Date: 20141002
  Serious: Yes (Other)
  Sender: FDA-Public Use
  Company Number: US-ABBVIE-13P-163-1108139-00

PATIENT
  Age: 51 Year
  Sex: Female
  Weight: 77.18 kg

DRUGS (10)
  1. HUMIRA [Suspect]
     Indication: PSORIATIC ARTHROPATHY
     Dates: start: 2013, end: 201303
  2. METHOTREXATE [Concomitant]
     Indication: PSORIATIC ARTHROPATHY
  3. LEUCOVORIN [Concomitant]
     Indication: PSORIATIC ARTHROPATHY
  4. PROPANOLOL [Concomitant]
     Indication: HYPERTENSION
  5. METHADONE [Concomitant]
     Indication: PAIN
  6. NORCO [Concomitant]
     Indication: PAIN
  7. ZANAFLEX [Concomitant]
     Indication: MUSCLE RELAXANT THERAPY
  8. VITAMIN C [Concomitant]
     Indication: VITAMIN SUPPLEMENTATION
  9. CORTIZONE [Concomitant]
     Indication: PSORIATIC ARTHROPATHY
  10. VITAMIN D [Concomitant]
     Indication: VITAMIN SUPPLEMENTATION

REACTIONS (5)
  - Ludwig angina [Recovered/Resolved]
  - Scar [Not Recovered/Not Resolved]
  - Incontinence [Recovered/Resolved]
  - Drug withdrawal syndrome [Recovered/Resolved]
  - Psoriatic arthropathy [Not Recovered/Not Resolved]
